FAERS Safety Report 7882855-1 (Version None)
Quarter: 2011Q4

REPORT INFORMATION
  Report Type: 
  Country: None (occurrence: None)
  Receive Date: 20111101
  Receipt Date: 20110621
  Transmission Date: 20120403
  Serious: No
  Sender: FDA-Public Use
  Company Number: US-AMGEN-USASP2011021207

PATIENT
  Sex: Male
  Weight: 54.422 kg

DRUGS (8)
  1. ENBREL [Suspect]
     Indication: PSORIASIS
     Dosage: 50 MG, QWK
     Route: 058
  2. LISINOPRIL [Concomitant]
     Dosage: 2.5 MG, UNK
  3. ASPIRIN [Concomitant]
     Dosage: 81 MG, UNK
  4. CHLORPROMAZINE [Concomitant]
     Dosage: 10 MG, UNK
  5. LIPITOR [Concomitant]
     Dosage: 10 MG, UNK
  6. ACTOS [Concomitant]
     Dosage: 15 MG, UNK
  7. JANUVIA [Concomitant]
     Dosage: 100 MG, UNK
  8. GLIPIZIDE [Concomitant]
     Dosage: 10 MG, UNK

REACTIONS (4)
  - FEELING HOT [None]
  - ABDOMINAL DISCOMFORT [None]
  - EATING DISORDER [None]
  - GASTROINTESTINAL INFECTION [None]
